FAERS Safety Report 8048007-X (Version None)
Quarter: 2012Q1

REPORT INFORMATION
  Report Type: 
  Country: None (occurrence: None)
  Receive Date: 20120116
  Receipt Date: 20120112
  Transmission Date: 20120608
  Serious: Yes (Other)
  Sender: FDA-Public Use
  Company Number: US-ABBOTT-12P-163-0889738-00

PATIENT
  Sex: Male

DRUGS (1)
  1. HUMIRA [Suspect]
     Indication: PSORIASIS
     Dosage: UNIT DOSE: 40 MILLIGRAM EVERY 2 WEEKS
     Route: 058
     Dates: start: 20100101, end: 20110101

REACTIONS (1)
  - PROSTATE CANCER [None]
